FAERS Safety Report 16310743 (Version 3)
Quarter: 2022Q2

REPORT INFORMATION
  Report Type: Spontaneous
  Country: US (occurrence: None)
  Receive Date: 20190514
  Receipt Date: 20220404
  Transmission Date: 20220721
  Serious: Yes (Death, Other)
  Sender: FDA-Public Use
  Company Number: 2019SE66851

PATIENT
  Sex: Female
  Weight: 72.6 kg

DRUGS (55)
  1. NEXIUM [Suspect]
     Active Substance: ESOMEPRAZOLE MAGNESIUM
     Indication: Gastrooesophageal reflux disease
     Route: 048
  2. NEXIUM [Suspect]
     Active Substance: ESOMEPRAZOLE MAGNESIUM
     Indication: Gastrooesophageal reflux disease
     Route: 048
  3. NEXIUM [Suspect]
     Active Substance: ESOMEPRAZOLE MAGNESIUM
     Indication: Gastrooesophageal reflux disease
     Route: 048
     Dates: start: 20141216
  4. NEXIUM [Suspect]
     Active Substance: ESOMEPRAZOLE MAGNESIUM
     Indication: Gastrooesophageal reflux disease
     Route: 048
     Dates: start: 20141216
  5. PRILOSEC [Suspect]
     Active Substance: OMEPRAZOLE MAGNESIUM
     Indication: Gastrooesophageal reflux disease
     Route: 048
     Dates: end: 2016
  6. PRILOSEC [Suspect]
     Active Substance: OMEPRAZOLE MAGNESIUM
     Indication: Gastrooesophageal reflux disease
     Route: 048
     Dates: end: 2016
  7. PRILOSEC [Suspect]
     Active Substance: OMEPRAZOLE MAGNESIUM
     Indication: Gastrooesophageal reflux disease
     Dosage: GENERIC40.0MG UNKNOWN
     Route: 065
     Dates: end: 2016
  8. PRILOSEC [Suspect]
     Active Substance: OMEPRAZOLE MAGNESIUM
     Indication: Gastrooesophageal reflux disease
     Dosage: GENERIC40.0MG UNKNOWN
     Route: 065
     Dates: end: 2016
  9. PRILOSEC [Suspect]
     Active Substance: OMEPRAZOLE MAGNESIUM
     Indication: Gastrooesophageal reflux disease
     Dosage: GENERIC40.0MG UNKNOWN
     Route: 065
     Dates: start: 20121218
  10. PRILOSEC [Suspect]
     Active Substance: OMEPRAZOLE MAGNESIUM
     Indication: Gastrooesophageal reflux disease
     Dosage: GENERIC40.0MG UNKNOWN
     Route: 065
     Dates: start: 20121218
  11. PRILOSEC [Suspect]
     Active Substance: OMEPRAZOLE MAGNESIUM
     Indication: Gastrooesophageal reflux disease
     Dosage: GENERIC40.0MG UNKNOWN
     Route: 065
     Dates: start: 20110722
  12. PRILOSEC [Suspect]
     Active Substance: OMEPRAZOLE MAGNESIUM
     Indication: Gastrooesophageal reflux disease
     Dosage: GENERIC40.0MG UNKNOWN
     Route: 065
     Dates: start: 20110722
  13. DEXILANT [Suspect]
     Active Substance: DEXLANSOPRAZOLE
     Indication: Gastrooesophageal reflux disease
     Route: 065
     Dates: end: 2016
  14. DEXILANT [Suspect]
     Active Substance: DEXLANSOPRAZOLE
     Indication: Gastrooesophageal reflux disease
     Route: 065
     Dates: end: 2016
  15. DEXILANT [Suspect]
     Active Substance: DEXLANSOPRAZOLE
     Indication: Gastrooesophageal reflux disease
     Dosage: 60.0MG UNKNOWN
     Route: 065
     Dates: start: 20160504
  16. DEXILANT [Suspect]
     Active Substance: DEXLANSOPRAZOLE
     Indication: Gastrooesophageal reflux disease
     Dosage: 60.0MG UNKNOWN
     Route: 065
     Dates: start: 20160504
  17. PREVACID [Suspect]
     Active Substance: LANSOPRAZOLE
     Indication: Gastrooesophageal reflux disease
     Route: 065
     Dates: end: 2016
  18. PREVACID [Suspect]
     Active Substance: LANSOPRAZOLE
     Indication: Gastrooesophageal reflux disease
     Route: 065
     Dates: end: 2016
  19. PROTONIX [Suspect]
     Active Substance: PANTOPRAZOLE SODIUM
     Indication: Gastrooesophageal reflux disease
     Route: 065
     Dates: end: 2016
  20. PROTONIX [Suspect]
     Active Substance: PANTOPRAZOLE SODIUM
     Indication: Gastrooesophageal reflux disease
     Route: 065
     Dates: end: 2016
  21. FUROSEMIDE [Concomitant]
     Active Substance: FUROSEMIDE
     Dates: end: 20160622
  22. TAMARACK [Concomitant]
     Active Substance: LARIX OCCIDENTALIS POLLEN
     Indication: Routine health maintenance
     Dosage: ON OCCASION
  23. TAMARACK [Concomitant]
     Active Substance: LARIX OCCIDENTALIS POLLEN
     Indication: Antiinflammatory therapy
     Dosage: ON OCCASION
  24. MULTI-VITAMINS [Concomitant]
     Indication: Diabetes mellitus
     Dosage: DAILY
  25. RANITIDINE [Concomitant]
     Active Substance: RANITIDINE
     Dosage: GENERIC
     Dates: start: 20110722
  26. TUMS [Concomitant]
     Active Substance: CALCIUM CARBONATE
     Dosage: OCCASIONALLY AS NEEDED
  27. ROLAIDS [Concomitant]
     Active Substance: CALCIUM CARBONATE\MAGNESIUM HYDROXIDE
     Dosage: OCCASIONALLY AS NEEDED
     Dates: start: 20110722
  28. FENTANYL [Concomitant]
     Active Substance: FENTANYL
     Dates: start: 20120303
  29. LEVEMIR [Concomitant]
     Active Substance: INSULIN DETEMIR
     Dates: start: 20120612
  30. CODEINE\PROMETHAZINE [Concomitant]
     Active Substance: CODEINE\PROMETHAZINE
     Dates: start: 20120612
  31. DIGOXIN [Concomitant]
     Active Substance: DIGOXIN
     Dates: start: 20120704
  32. GABAPENTIN [Concomitant]
     Active Substance: GABAPENTIN
     Dates: start: 20120704
  33. METOPROLOL [Concomitant]
     Active Substance: METOPROLOL
     Dates: start: 20120705
  34. ULORIC [Concomitant]
     Active Substance: FEBUXOSTAT
     Dates: start: 20120705
  35. COLCRYS [Concomitant]
     Active Substance: COLCHICINE
     Dates: start: 20120705
  36. VENLAFAXINE [Concomitant]
     Active Substance: VENLAFAXINE HYDROCHLORIDE
     Dates: start: 20120705
  37. ACETAMINOPHEN\HYDROCODONE BITARTRATE [Concomitant]
     Active Substance: ACETAMINOPHEN\HYDROCODONE BITARTRATE
     Dates: start: 20120705
  38. SUCRALFATE [Concomitant]
     Active Substance: SUCRALFATE
     Dates: start: 20120815
  39. LOSARTAN [Concomitant]
     Active Substance: LOSARTAN
     Dates: start: 20121018
  40. PROAIR HFA [Concomitant]
     Active Substance: ALBUTEROL SULFATE
     Dates: start: 20121019
  41. MIRTAZAPINE [Concomitant]
     Active Substance: MIRTAZAPINE
     Dates: start: 20121228
  42. RISPERIDONE [Concomitant]
     Active Substance: RISPERIDONE
     Dates: start: 20131229
  43. CRESTOR [Concomitant]
     Active Substance: ROSUVASTATIN CALCIUM
     Dates: start: 20131229
  44. SYMBICORT [Concomitant]
     Active Substance: BUDESONIDE\FORMOTEROL FUMARATE DIHYDRATE
     Dates: start: 20121228
  45. OLANZAPINE [Concomitant]
     Active Substance: OLANZAPINE
     Dates: start: 20121228
  46. CALCITRIOL [Concomitant]
     Active Substance: CALCITRIOL
     Dates: start: 20121228
  47. PRADAXA [Concomitant]
     Active Substance: DABIGATRAN ETEXILATE MESYLATE
     Dates: start: 20150810
  48. METHOCARBAMOL [Concomitant]
     Active Substance: METHOCARBAMOL
  49. METHYLPREDNISOLONE [Concomitant]
     Active Substance: METHYLPREDNISOLONE
     Dates: start: 20150806
  50. AZITHROMYCIN [Concomitant]
     Active Substance: AZITHROMYCIN
     Dates: start: 20150806
  51. MEXILETINE [Concomitant]
     Active Substance: MEXILETINE
     Dates: start: 20160421
  52. CARVEDILOL [Concomitant]
     Active Substance: CARVEDILOL
     Dates: start: 20160421
  53. LISINOPRIL [Concomitant]
     Active Substance: LISINOPRIL
     Dates: start: 20160421
  54. LEVOFLOXACIN [Concomitant]
     Active Substance: LEVOFLOXACIN
     Dates: start: 20160421
  55. SPIRIVA [Concomitant]
     Active Substance: TIOTROPIUM BROMIDE MONOHYDRATE
     Dates: start: 20151213

REACTIONS (6)
  - Cardiac failure congestive [Fatal]
  - Pulmonary hypertension [Fatal]
  - Acute kidney injury [Not Recovered/Not Resolved]
  - Chronic kidney disease [Not Recovered/Not Resolved]
  - End stage renal disease [Not Recovered/Not Resolved]
  - Renal failure [Unknown]
